FAERS Safety Report 7071260-6 (Version None)
Quarter: 2010Q4

REPORT INFORMATION
  Report Type: 
  Country: None (occurrence: None)
  Receive Date: 20101029
  Receipt Date: 20101015
  Transmission Date: 20110411
  Serious: Yes (Other)
  Sender: FDA-Public Use
  Company Number: US-SANOFI-AVENTIS-2010SA064468

PATIENT
  Sex: Male

DRUGS (1)
  1. PLAVIX [Suspect]
     Indication: PLATELET FUNCTION TEST ABNORMAL
     Route: 065

REACTIONS (5)
  - IN-STENT CORONARY ARTERY RESTENOSIS [None]
  - NO THERAPEUTIC RESPONSE [None]
  - PLATELET FUNCTION TEST ABNORMAL [None]
  - SPLENOMEGALY [None]
  - THROMBOCYTOSIS [None]
